FAERS Safety Report 4406614-7 (Version None)
Quarter: 2004Q3

REPORT INFORMATION
  Report Type: 
  Country: None (occurrence: None)
  Receive Date: 20040716
  Receipt Date: 20040709
  Transmission Date: 20050211
  Serious: Yes (Death, Hospitalization)
  Sender: FDA-Public Use
  Company Number: 2004221504ES

PATIENT
  Age: 56 Year
  Sex: Male

DRUGS (8)
  1. CAMPTOSAR [Suspect]
     Indication: COLORECTAL CANCER METASTATIC
     Dosage: 630 MG, CYLIC, IV
     Route: 042
     Dates: start: 20040616, end: 20040616
  2. CETUXIMAB [Suspect]
     Indication: COLORECTAL CANCER METASTATIC
     Dosage: 720 MG, CYCLIC, IV
     Route: 042
     Dates: start: 20040616, end: 20040616
  3. ASPIRIN [Concomitant]
  4. ENALAPRIL MALEATE [Concomitant]
  5. DIAZEPAM [Concomitant]
  6. IBUPROFEN [Concomitant]
  7. OMEPRAZOLE [Concomitant]
  8. IRON [Concomitant]

REACTIONS (8)
  - COLORECTAL CANCER METASTATIC [None]
  - DIARRHOEA [None]
  - GENERAL PHYSICAL HEALTH DETERIORATION [None]
  - HYPOVOLAEMIC SHOCK [None]
  - INTESTINAL OBSTRUCTION [None]
  - MALIGNANT NEOPLASM PROGRESSION [None]
  - RENAL FAILURE [None]
  - URINARY RETENTION [None]
